FAERS Safety Report 9246776 (Version 9)
Quarter: 2015Q1

REPORT INFORMATION
  Report Type: Spontaneous
  Country: FR (occurrence: FR)
  Receive Date: 20130422
  Receipt Date: 20150130
  Transmission Date: 20150721
  Serious: Yes (Congenital Anomaly, Other)
  Sender: FDA-Public Use
  Company Number: FR-GILEAD-2013-0073522

PATIENT
  Sex: Male
  Weight: 3.49 kg

DRUGS (8)
  1. DARUNAVIR [Concomitant]
     Active Substance: DARUNAVIR
     Indication: HIV INFECTION
     Dosage: UNK
     Route: 064
     Dates: start: 20111018, end: 20111026
  2. RITONAVIR. [Concomitant]
     Active Substance: RITONAVIR
     Indication: HIV INFECTION
     Dosage: UNK
     Route: 064
     Dates: start: 20111018, end: 20111026
  3. VIRAMUNE [Concomitant]
     Active Substance: NEVIRAPINE
     Dosage: 1 DF, TOTAL
     Dates: start: 20111026
  4. ISENTRESS [Concomitant]
     Active Substance: RALTEGRAVIR POTASSIUM
     Indication: HIV INFECTION
     Dosage: UNK
     Route: 064
     Dates: start: 20111018, end: 20111026
  5. LAMIVUDINE. [Concomitant]
     Active Substance: LAMIVUDINE
  6. TRUVADA [Suspect]
     Active Substance: EMTRICITABINE\TENOFOVIR DISOPROXIL FUMARATE
     Indication: HIV INFECTION
     Dosage: UNK
     Route: 064
     Dates: start: 20111018, end: 20111026
  7. ZIDOVUDINE. [Concomitant]
     Active Substance: ZIDOVUDINE
  8. RETROVIR [Concomitant]
     Active Substance: ZIDOVUDINE
     Dosage: UNK
     Route: 064
     Dates: start: 20111026, end: 20111026

REACTIONS (3)
  - Left atrial dilatation [Not Recovered/Not Resolved]
  - Dilatation ventricular [Not Recovered/Not Resolved]
  - Mitral valve incompetence [Not Recovered/Not Resolved]
